FAERS Safety Report 5302146-2 (Version None)
Quarter: 2007Q2

REPORT INFORMATION
  Report Type: 
  Country: None (occurrence: None)
  Receive Date: 20070416
  Receipt Date: 20070416
  Transmission Date: 20071010
  Serious: No
  Sender: FDA-Public Use
  Company Number: None

PATIENT
  Age: 26 Year
  Sex: Female
  Weight: 58.9676 kg

DRUGS (1)
  1. ZELNORM [Suspect]

REACTIONS (5)
  - ABDOMINAL PAIN UPPER [None]
  - ANOREXIA [None]
  - DIARRHOEA [None]
  - HEADACHE [None]
  - MOOD SWINGS [None]
